FAERS Safety Report 7719008-3 (Version None)
Quarter: 2011Q3

REPORT INFORMATION
  Report Type: 
  Country: None (occurrence: None)
  Receive Date: 20110830
  Receipt Date: 20110823
  Transmission Date: 20111222
  Serious: Yes (Other)
  Sender: FDA-Public Use
  Company Number: JP-GLAXOSMITHKLINE-B0742391A

PATIENT

DRUGS (1)
  1. LAMICTAL [Suspect]
     Indication: INFANTILE SPASMS
     Route: 048

REACTIONS (1)
  - TONIC CONVULSION [None]
